FAERS Safety Report 9717347 (Version 2)
Quarter: 2013Q4

REPORT INFORMATION
  Report Type: Spontaneous
  Country: US (occurrence: US)
  Receive Date: 20131127
  Receipt Date: 20131230
  Transmission Date: 20140711
  Serious: No
  Sender: FDA-Public Use
  Company Number: US-PFIZER INC-2013337196

PATIENT
  Sex: Female

DRUGS (2)
  1. GLIPIZIDE [Suspect]
     Dosage: 10 MG, UNK
  2. METFORMIN HCL [Suspect]
     Dosage: 1000 MG, UNK

REACTIONS (1)
  - Blood glucose increased [Unknown]
